FAERS Safety Report 4504663-1 (Version None)
Quarter: 2004Q4

REPORT INFORMATION
  Report Type: 
  Country: None (occurrence: None)
  Receive Date: 20041116
  Receipt Date: 20041104
  Transmission Date: 20050328
  Serious: Yes (Life-Threatening, Hospitalization)
  Sender: FDA-Public Use
  Company Number: 2004088401

PATIENT
  Age: 61 Year
  Sex: Female
  Weight: 100 kg

DRUGS (9)
  1. NORVASC [Suspect]
     Indication: ESSENTIAL HYPERTENSION
     Dosage: 5 MG (5 MG, 1 IN 1 D), ORAL
     Route: 048
     Dates: end: 20041012
  2. ALLOPURINOL [Suspect]
     Indication: HYPERURICAEMIA
     Dosage: 100 MG (100 MG, 1 IN 1 D), ORAL
     Route: 048
     Dates: end: 20041012
  3. TORSEMIDE [Suspect]
     Indication: CARDIAC FAILURE
     Dosage: 30 MG (30 MG, 1 IN 1 D), ORAL
     Route: 048
  4. ASPIRIN [Suspect]
     Indication: ARTERIAL THROMBOSIS
     Dosage: 100 MG (100 MG, 1 IN 1 D), ORAL
     Route: 048
  5. ASPIRIN [Suspect]
     Indication: EMBOLISM
     Dosage: 100 MG (100 MG, 1 IN 1 D), ORAL
     Route: 048
  6. SPIRONOLACTONE [Concomitant]
  7. METOPROLOL SUCCINATE [Concomitant]
  8. LOSARTAN POTASSIUM [Concomitant]
  9. ACENOCOUMAROL (ACENOCOUMAROL) [Concomitant]

REACTIONS (4)
  - APLASTIC ANAEMIA [None]
  - CARDIAC FAILURE [None]
  - HYPOTENSION [None]
  - PANCYTOPENIA [None]
